FAERS Safety Report 8474273-2 (Version None)
Quarter: 2012Q2

REPORT INFORMATION
  Report Type: 
  Country: None (occurrence: None)
  Receive Date: 20120628
  Receipt Date: 20120620
  Transmission Date: 20120825
  Serious: Yes (Other)
  Sender: FDA-Public Use
  Company Number: JP-JNJFOC-20120611623

PATIENT
  Sex: Male
  Weight: 46 kg

DRUGS (17)
  1. SIMPONI [Suspect]
     Indication: RHEUMATOID ARTHRITIS
     Route: 058
     Dates: start: 20111219
  2. RABEPRAZOLE SODIUM [Concomitant]
     Indication: PROPHYLAXIS
     Route: 065
  3. NOVORAPID [Concomitant]
     Route: 065
  4. TELMISARTAN [Concomitant]
     Route: 065
  5. SIMPONI [Suspect]
     Route: 058
     Dates: start: 20120116
  6. METHOTREXATE [Concomitant]
     Indication: RHEUMATOID ARTHRITIS
     Route: 065
     Dates: start: 20120312
  7. METHOTREXATE [Concomitant]
     Route: 065
     Dates: start: 20110418, end: 20120311
  8. SIMPONI [Suspect]
     Route: 058
     Dates: start: 20120405
  9. SIMPONI [Suspect]
     Route: 058
     Dates: start: 20120502
  10. SIMPONI [Suspect]
     Route: 058
     Dates: start: 20120530
  11. CELEBREX [Concomitant]
     Indication: RHEUMATOID ARTHRITIS
     Route: 065
  12. NEOISCOTIN [Concomitant]
     Indication: PROPHYLAXIS
     Route: 065
  13. SIMPONI [Suspect]
     Route: 058
     Dates: start: 20120213
  14. SIMPONI [Suspect]
     Route: 058
     Dates: start: 20111121
  15. TENORMIN [Concomitant]
     Route: 065
  16. SIMPONI [Suspect]
     Route: 058
     Dates: start: 20120312
  17. JANUVIA [Concomitant]
     Route: 065

REACTIONS (1)
  - RENAL DISORDER [None]
